FAERS Safety Report 15815245 (Version 3)
Quarter: 2023Q4

REPORT INFORMATION
  Report Type: Report from Study
  Country: DE (occurrence: DE)
  Receive Date: 20190112
  Receipt Date: 20231026
  Transmission Date: 20240110
  Serious: Yes (Hospitalization)
  Sender: FDA-Public Use
  Company Number: DE-AMGEN-DEUCT2019003479

PATIENT
  Age: 65 Year
  Sex: Female
  Weight: 76 kg

DRUGS (18)
  1. CARFILZOMIB [Suspect]
     Active Substance: CARFILZOMIB
     Indication: Plasma cell myeloma
     Dosage: 20 MG/M2, PER CHEMO REGIM
     Route: 042
     Dates: start: 20180917
  2. CARFILZOMIB [Suspect]
     Active Substance: CARFILZOMIB
     Dosage: 36 MG/M2, PER CHEMO REGIM
     Route: 042
  3. CARFILZOMIB [Suspect]
     Active Substance: CARFILZOMIB
     Dosage: 67 MILLIGRAM, PER CHEMO REGIM
     Route: 042
     Dates: start: 20181218
  4. LENALIDOMIDE [Suspect]
     Active Substance: LENALIDOMIDE
     Indication: Plasma cell myeloma
     Dosage: 25 MG, PER CHEMO REGIM
     Route: 048
     Dates: start: 20180917
  5. LENALIDOMIDE [Suspect]
     Active Substance: LENALIDOMIDE
     Dosage: 25 MILLIGRAM, PER CHEMO REGIM
     Route: 048
     Dates: start: 20181219
  6. ISATUXIMAB [Suspect]
     Active Substance: ISATUXIMAB
     Indication: Plasma cell myeloma
     Dosage: 770 MG/KG, PER CHEMO REGIM
     Route: 042
     Dates: start: 20180917
  7. ISATUXIMAB [Suspect]
     Active Substance: ISATUXIMAB
     Dosage: 10 MG/KG, PER CHEMO REGIM
     Route: 042
     Dates: start: 20181210
  8. DEXAMETHASONE [Suspect]
     Active Substance: DEXAMETHASONE
     Indication: Plasma cell myeloma
     Dosage: 40 MG, PER CHEMO REGIM
     Route: 048
     Dates: start: 20180917
  9. DEXAMETHASONE [Suspect]
     Active Substance: DEXAMETHASONE
     Dosage: 80 MILLIGRAM, PER CHEMO REGIM
     Route: 048
  10. CANDESARTAN [Concomitant]
     Active Substance: CANDESARTAN
     Indication: Hypertension
     Dosage: 8 MG, QD
     Route: 048
     Dates: end: 20181219
  11. PANTOPRAZOLE [Concomitant]
     Active Substance: PANTOPRAZOLE
     Indication: Prophylaxis
     Dosage: 40 MG, QD
     Route: 048
     Dates: end: 20181219
  12. FEBUXOSTAT [Concomitant]
     Active Substance: FEBUXOSTAT
     Indication: Hyperuricaemia
     Dosage: 80 MG, QD
     Route: 065
     Dates: start: 20180803, end: 20181218
  13. GLYCOPYRRONIUM\INDACATEROL [Concomitant]
     Active Substance: GLYCOPYRRONIUM\INDACATEROL
     Indication: Chronic obstructive pulmonary disease
     Dosage: 1 UNK, QD
     Route: 048
     Dates: end: 20181219
  14. CALCIUM CARBONATE\CALCIUM LACTATE GLUCONATE [Concomitant]
     Active Substance: CALCIUM CARBONATE\CALCIUM LACTATE GLUCONATE
     Indication: Prophylaxis
     Dosage: 1 UNK, QD
     Route: 048
     Dates: start: 20180816, end: 20181219
  15. FELODIPINE [Concomitant]
     Active Substance: FELODIPINE
     Indication: Hypertension
     Dosage: 5 MG, QD
     Route: 048
     Dates: start: 20181128, end: 20181219
  16. SULFAMETHOXAZOLE\TRIMETHOPRIM [Concomitant]
     Active Substance: SULFAMETHOXAZOLE\TRIMETHOPRIM
     Indication: Prophylaxis
     Dosage: 960 MG, UNK
     Route: 065
     Dates: end: 20181219
  17. ACYCLOVIR [Concomitant]
     Active Substance: ACYCLOVIR
     Indication: Prophylaxis
     Dosage: 800 MG, QD
     Route: 048
     Dates: end: 20181219
  18. CALCIUM BROMIDE [Concomitant]
     Active Substance: CALCIUM BROMIDE
     Indication: Prophylaxis
     Dosage: 1 UNK
     Dates: start: 20180816, end: 20181218

REACTIONS (2)
  - Infection [Recovered/Resolved]
  - Pneumonia [Recovered/Resolved]

NARRATIVE: CASE EVENT DATE: 20181219
